FAERS Safety Report 4977507-1 (Version None)
Quarter: 2006Q2

REPORT INFORMATION
  Report Type: 
  Country: None (occurrence: None)
  Receive Date: 20060420
  Receipt Date: 20060412
  Transmission Date: 20061013
  Serious: Yes (Hospitalization)
  Sender: FDA-Public Use
  Company Number: FR-ABBOTT-06P-056-0330759-00

PATIENT
  Age: 66 Year
  Sex: Male

DRUGS (3)
  1. MONONAXY [Suspect]
     Indication: BRONCHITIS
     Route: 048
     Dates: start: 20060224
  2. PREDNISOLONE SODIUM PHOSPHATE [Concomitant]
     Indication: THROMBOCYTOPENIA
  3. DANAZOL [Concomitant]
     Indication: MYELODYSPLASTIC SYNDROME

REACTIONS (2)
  - ANAEMIA [None]
  - JAUNDICE [None]
